FAERS Safety Report 24654631 (Version 2)
Quarter: 2024Q4

REPORT INFORMATION
  Report Type: Report from Study
  Country: GR (occurrence: EU)
  Receive Date: 20241122
  Receipt Date: 20241122
  Transmission Date: 20250114
  Serious: Yes (Hospitalization)
  Sender: ASCENDIS PHARMA
  Company Number: GR-ASCENDIS PHARMA-2024EU007094

PATIENT

DRUGS (2)
  1. PALOPEGTERIPARATIDE [Suspect]
     Active Substance: PALOPEGTERIPARATIDE
     Indication: Hypoparathyroidism
     Dosage: 18 MCG, PER DAY
     Route: 058
     Dates: start: 20241111
  2. OLMESARTAN MEDOXOMIL [Concomitant]
     Active Substance: OLMESARTAN MEDOXOMIL
     Indication: Product used for unknown indication
     Dosage: 10MG TAB, UNK

REACTIONS (3)
  - Hypoaesthesia oral [Recovered/Resolved]
  - Hypoaesthesia [Recovered/Resolved]
  - Condition aggravated [Recovered/Resolved]

NARRATIVE: CASE EVENT DATE: 20241111
